FAERS Safety Report 12136765 (Version 2)
Quarter: 2016Q2

REPORT INFORMATION
  Report Type: Spontaneous
  Country: US (occurrence: US)
  Receive Date: 20160302
  Receipt Date: 20160608
  Transmission Date: 20160815
  Serious: No
  Sender: FDA-Public Use
  Company Number: US-GLAXOSMITHKLINE-US2016GSK028364

PATIENT
  Sex: Male

DRUGS (1)
  1. AVODART [Suspect]
     Active Substance: DUTASTERIDE
     Dosage: UNK
     Dates: end: 201505

REACTIONS (3)
  - Gynaecomastia [Unknown]
  - Night sweats [Not Recovered/Not Resolved]
  - Abnormal dreams [Not Recovered/Not Resolved]
